FAERS Safety Report 11718823 (Version 4)
Quarter: 2016Q1

REPORT INFORMATION
  Report Type: Spontaneous
  Country: AR (occurrence: AR)
  Receive Date: 20151110
  Receipt Date: 20160119
  Transmission Date: 20160525
  Serious: Yes (Other)
  Sender: FDA-Public Use
  Company Number: AR-PFIZER INC-2015367847

PATIENT
  Age: 67 Year
  Sex: Female

DRUGS (1)
  1. XALKORI [Suspect]
     Active Substance: CRIZOTINIB
     Indication: NON-SMALL CELL LUNG CANCER METASTATIC
     Dosage: 250 MG, CYCLIC (250 MG TWICE DAILY DURING TWO DAYS AND AT 250 MG IN THE THIRD DAY)
     Dates: start: 20150715

REACTIONS (10)
  - Ageusia [Recovered/Resolved]
  - Disease progression [Unknown]
  - Hypophagia [Recovered/Resolved]
  - Peripheral swelling [Recovering/Resolving]
  - Hepatic cirrhosis [Not Recovered/Not Resolved]
  - Salivary hypersecretion [Recovered/Resolved]
  - Liver injury [Not Recovered/Not Resolved]
  - Non-small cell lung cancer metastatic [Unknown]
  - Blood pressure decreased [Recovered/Resolved]
  - Blood bilirubin increased [Recovered/Resolved]

NARRATIVE: CASE EVENT DATE: 201509
